FAERS Safety Report 7526775-0 (Version None)
Quarter: 2011Q2

REPORT INFORMATION
  Report Type: 
  Country: None (occurrence: None)
  Receive Date: 20110606
  Receipt Date: 20110524
  Transmission Date: 20111010
  Serious: Yes (Other)
  Sender: FDA-Public Use
  Company Number: US-BAYER-2011-044907

PATIENT
  Age: 4 Year

DRUGS (1)
  1. PHENYLEPHRINE HCL [Suspect]
     Dosage: UNK
     Route: 055
     Dates: start: 20110524

REACTIONS (2)
  - BLOOD PRESSURE SYSTOLIC INCREASED [None]
  - HEART RATE INCREASED [None]
